FAERS Safety Report 9039057 (Version 1)
Quarter: 2013Q1

REPORT INFORMATION
  Report Type: Report from Study
  Country: US (occurrence: US)
  Receive Date: 20130129
  Receipt Date: 20130129
  Transmission Date: 20140127
  Serious: No
  Sender: FDA-Public Use
  Company Number: US-ABBOTT-12P-163-0931169-00

PATIENT
  Age: 55 Year
  Sex: Male

DRUGS (6)
  1. HUMIRA 40 MG/0.8 ML PEN [Suspect]
     Indication: RHEUMATOID ARTHRITIS
     Dates: start: 20111212
  2. METHOTREXATE [Concomitant]
     Indication: RHEUMATOID ARTHRITIS
     Dosage: 2.5MG, 7 TABLETS EVERY SUNDAY
     Route: 048
  3. AMLODIPINE [Concomitant]
     Indication: HYPERTENSION
     Dosage: 10MG DAILY
     Route: 048
  4. LISINOPRIL [Concomitant]
     Indication: HYPERTENSION
     Dosage: 40MG DAILY
     Route: 048
  5. TRAMADOL [Concomitant]
     Indication: PAIN
     Route: 048
  6. NABUMETONE [Concomitant]
     Indication: PAIN
     Dosage: 1-2 TWICE A DAY
     Route: 048

REACTIONS (3)
  - Wrong technique in drug usage process [Recovered/Resolved]
  - Injection site reaction [Recovered/Resolved]
  - Injection site haemorrhage [Unknown]
